FAERS Safety Report 6570924-8 (Version None)
Quarter: 2010Q1

REPORT INFORMATION
  Report Type: 
  Country: None (occurrence: None)
  Receive Date: 20100204
  Receipt Date: 20100129
  Transmission Date: 20100710
  Serious: Yes (Hospitalization)
  Sender: FDA-Public Use
  Company Number: FR-ROXANE LABORATORIES, INC.-2010-RO-00114RO

PATIENT
  Age: 67 Year
  Sex: Male

DRUGS (9)
  1. LAMOTRIGINE [Suspect]
     Indication: PARTIAL SEIZURES
     Dosage: 200 MG
     Dates: start: 20040414, end: 20040521
  2. PHENOBARBITAL TAB [Suspect]
     Indication: PARTIAL SEIZURES
     Dates: end: 20040414
  3. PHENOBARBITAL TAB [Suspect]
     Dates: start: 20040521
  4. ANTIHISTAMINES [Suspect]
     Indication: RASH
  5. CORTICOSTEROIDS [Suspect]
     Indication: RASH
  6. CORTICOSTEROIDS [Suspect]
     Dates: start: 20040531
  7. IVERMECTIN [Concomitant]
     Indication: PARASITIC INFECTION PROPHYLAXIS
     Dosage: 12 MG
  8. HYDROCORTISONE [Concomitant]
     Dosage: 20 MG
  9. CLONAZEPAM [Concomitant]
     Indication: PARTIAL SEIZURES
     Dosage: 40 MG

REACTIONS (1)
  - DRUG RASH WITH EOSINOPHILIA AND SYSTEMIC SYMPTOMS [None]
